FAERS Safety Report 15753118 (Version 2)
Quarter: 2019Q1

REPORT INFORMATION
  Report Type: Spontaneous
  Country: JP (occurrence: JP)
  Receive Date: 20181222
  Receipt Date: 20190201
  Transmission Date: 20190417
  Serious: Yes (Hospitalization, Other)
  Sender: FDA-Public Use
  Company Number: JP-AMGEN-JPNSP2018183712

PATIENT
  Age: 76 Year
  Sex: Male

DRUGS (10)
  1. BIO-THREE [Concomitant]
     Active Substance: HERBALS
     Dosage: UNK
     Route: 065
  2. SENNARIDE [Concomitant]
     Active Substance: SENNOSIDES A AND B
     Dosage: UNK
     Route: 048
  3. FLUOROURACIL. [Concomitant]
     Active Substance: FLUOROURACIL
     Indication: COLON CANCER
     Dosage: UNK
     Route: 040
     Dates: start: 20181113
  4. LANSOPRAZOLE. [Concomitant]
     Active Substance: LANSOPRAZOLE
     Dosage: UNK
     Route: 065
  5. VECTIBIX [Suspect]
     Active Substance: PANITUMUMAB
     Indication: COLON CANCER
     Dosage: 330 MG, Q2WK
     Route: 041
     Dates: start: 20181113, end: 20181113
  6. FLUOROURACIL. [Concomitant]
     Active Substance: FLUOROURACIL
     Dosage: UNK
     Route: 041
     Dates: start: 20181113
  7. CALCIUM LEVOFOLINATE [Concomitant]
     Active Substance: LEVOLEUCOVORIN CALCIUM
     Indication: COLON CANCER
     Dosage: UNK
     Route: 041
     Dates: start: 20181113
  8. MINOCYCLINE HYDROCHLORIDE. [Concomitant]
     Active Substance: MINOCYCLINE HYDROCHLORIDE
     Dosage: UNK
     Route: 065
  9. OXALIPLATIN. [Concomitant]
     Active Substance: OXALIPLATIN
     Indication: COLON CANCER
     Dosage: UNK
     Route: 041
     Dates: start: 20181113
  10. LOTRIGA [Concomitant]
     Active Substance: OMEGA-3-ACID ETHYL ESTERS
     Dosage: UNK
     Route: 048

REACTIONS (1)
  - Pneumonia [Recovering/Resolving]

NARRATIVE: CASE EVENT DATE: 20181127
